FAERS Safety Report 10361333 (Version 2)
Quarter: 2014Q3

REPORT INFORMATION
  Report Type: Spontaneous
  Country: US (occurrence: US)
  Receive Date: 20140804
  Receipt Date: 20140811
  Transmission Date: 20150326
  Serious: Yes (Other)
  Sender: FDA-Public Use
  Company Number: US-BAXTER-2014BAX045239

PATIENT
  Age: 21 Month
  Sex: Female

DRUGS (5)
  1. 0.9% SODIUM CHLORIDE INJECTION [Suspect]
     Active Substance: SODIUM CHLORIDE
     Indication: HYPOTENSION
     Dosage: 3 BOLUS
     Route: 040
  2. EPINEPHRINE. [Suspect]
     Active Substance: EPINEPHRINE
     Indication: RESPIRATORY DISTRESS
     Dosage: ONE DOSE
     Route: 030
  3. EPINEPHRINE. [Suspect]
     Active Substance: EPINEPHRINE
     Dosage: TWO DOSES
     Route: 042
  4. EPINEPHRINE. [Suspect]
     Active Substance: EPINEPHRINE
     Dosage: 1 MCG/KG/MIN
     Route: 041
  5. EPINEPHRINE. [Suspect]
     Active Substance: EPINEPHRINE
     Dosage: OVER A PERIOD OF TWENTY MINUTES
     Route: 065

REACTIONS (1)
  - Cardiomyopathy [Recovered/Resolved]
